FAERS Safety Report 10028482 (Version 2)
Quarter: 2014Q2

REPORT INFORMATION
  Report Type: Spontaneous
  Country: US (occurrence: US)
  Receive Date: 20140321
  Receipt Date: 20140403
  Transmission Date: 20141212
  Serious: Yes (Other)
  Sender: FDA-Public Use
  Company Number: US-PERRIGO-14US002795

PATIENT
  Age: 69 Year
  Sex: Female
  Weight: 69.84 kg

DRUGS (3)
  1. TUSSIN DM MAX 799 [Suspect]
     Indication: PRODUCTIVE COUGH
     Dosage: 10 ML, PRN X4
     Route: 048
     Dates: start: 20140306, end: 20140307
  2. SYNTHROID [Concomitant]
     Indication: SUPPLEMENTATION THERAPY
     Dosage: UNK, UNK
     Route: 048
     Dates: start: 2009
  3. PREDNISONE [Concomitant]
     Indication: HEPATIC NEOPLASM
     Dosage: UNK, UNK
     Route: 048
     Dates: start: 201401

REACTIONS (3)
  - Heart rate increased [Recovered/Resolved]
  - Dyspnoea [Recovered/Resolved]
  - Feeling abnormal [Recovered/Resolved]
